FAERS Safety Report 6440015-5 (Version None)
Quarter: 2009Q4

REPORT INFORMATION
  Report Type: 
  Country: None (occurrence: None)
  Receive Date: 20091113
  Receipt Date: 20091110
  Transmission Date: 20100525
  Serious: Yes (Other)
  Sender: FDA-Public Use
  Company Number: JP-VALEANT-2009VX002131

PATIENT
  Age: 13 Year
  Sex: Male

DRUGS (1)
  1. DIHYDROERGOTAMINE MESYLATE [Suspect]
     Indication: HEADACHE
     Route: 048
     Dates: start: 20091023

REACTIONS (4)
  - ARRHYTHMIA [None]
  - CHEST PAIN [None]
  - CHOKING SENSATION [None]
  - DIPLOPIA [None]
